FAERS Safety Report 7940531-0 (Version None)
Quarter: 2011Q4

REPORT INFORMATION
  Report Type: 
  Country: None (occurrence: None)
  Receive Date: 20111108
  Receipt Date: 20110117
  Transmission Date: 20120403
  Serious: Yes (Death, Hospitalization)
  Sender: FDA-Public Use
  Company Number: PHHY2010US62895

PATIENT
  Age: 76 Year
  Sex: Female
  Weight: 90.2 kg

DRUGS (6)
  1. COUMADIN [Concomitant]
  2. CORAX (CHLORDIAZEPOXIDE HYDROCHLORIDE) [Concomitant]
  3. NEURONTIN [Concomitant]
  4. ZOMETA [Suspect]
     Dosage: 4 MG, INTRAVENOUS ; 03 MG, INTRAVENOUS
     Route: 042
     Dates: start: 20100909
  5. ZOMETA [Suspect]
     Dosage: 4 MG, INTRAVENOUS ; 03 MG, INTRAVENOUS
     Route: 042
     Dates: start: 20100812, end: 20100812
  6. LEVOXYL [Concomitant]

REACTIONS (2)
  - PYREXIA [None]
  - NEOPLASM MALIGNANT [None]
